FAERS Safety Report 8904918 (Version 7)
Quarter: 2015Q1

REPORT INFORMATION
  Report Type: Report from Study
  Country: US (occurrence: US)
  Receive Date: 20121113
  Receipt Date: 20150319
  Transmission Date: 20150721
  Serious: Yes (Hospitalization)
  Sender: FDA-Public Use
  Company Number: US-BIOGENIDEC-2012BI050600

PATIENT
  Age: 46 Year
  Sex: Female

DRUGS (1)
  1. TYSABRI [Suspect]
     Active Substance: NATALIZUMAB
     Indication: MULTIPLE SCLEROSIS
     Route: 042
     Dates: start: 20110829

REACTIONS (13)
  - Pain in extremity [Recovered/Resolved]
  - Intervertebral disc disorder [Not Recovered/Not Resolved]
  - Asthenia [Recovered/Resolved]
  - Neck pain [Recovered/Resolved]
  - Sensory disturbance [Recovered/Resolved]
  - Viral infection [Recovered/Resolved]
  - Deep vein thrombosis [None]
  - Foot fracture [None]
  - Labyrinthitis [Recovered/Resolved]
  - Multiple sclerosis relapse [Recovered/Resolved]
  - Malaise [Recovered/Resolved]
  - Sinusitis [Recovered/Resolved]
  - Migraine [Recovered/Resolved with Sequelae]

NARRATIVE: CASE EVENT DATE: 201109
